FAERS Safety Report 21605601 (Version 2)
Quarter: 2022Q4

REPORT INFORMATION
  Report Type: Report from Study
  Country: JP (occurrence: JP)
  Receive Date: 20221116
  Receipt Date: 20221227
  Transmission Date: 20230112
  Serious: Yes (Death)
  Sender: FDA-Public Use
  Company Number: JP-002147023-NVSJ2022JP099666

PATIENT
  Age: 75 Year
  Sex: Male
  Weight: 49.6 kg

DRUGS (4)
  1. ENTRESTO [Suspect]
     Active Substance: SACUBITRIL\VALSARTAN
     Indication: Cardiac failure chronic
     Dosage: 50 MG, BID
     Route: 048
     Dates: start: 20211007, end: 20220908
  2. ASPIRIN [Concomitant]
     Active Substance: ASPIRIN
     Indication: Cardiac failure chronic
     Dosage: UNK
     Route: 065
     Dates: end: 20220908
  3. NICORANDIL [Concomitant]
     Active Substance: NICORANDIL
     Indication: Cardiac failure chronic
     Dosage: UNK
     Route: 065
     Dates: end: 20220908
  4. BISOPROLOL [Concomitant]
     Active Substance: BISOPROLOL
     Indication: Cardiac failure chronic
     Dosage: UNK
     Route: 065
     Dates: end: 20220908

REACTIONS (3)
  - Fall [Fatal]
  - Injury [Fatal]
  - Subdural haematoma [Fatal]

NARRATIVE: CASE EVENT DATE: 20220822
